FAERS Safety Report 20168237 (Version 2)
Quarter: 2022Q1

REPORT INFORMATION
  Report Type: Spontaneous
  Country: US (occurrence: US)
  Receive Date: 20211210
  Receipt Date: 20220113
  Transmission Date: 20220424
  Serious: No
  Sender: FDA-Public Use
  Company Number: US-LEADINGPHARMA-US-2021LEASPO00334

PATIENT
  Age: 64 Year
  Sex: Male
  Weight: 225 kg

DRUGS (3)
  1. LORAZEPAM [Suspect]
     Active Substance: LORAZEPAM
     Indication: Tinnitus
     Route: 048
  2. ACEBUTOLOL [Concomitant]
     Active Substance: ACEBUTOLOL
     Indication: Blood pressure abnormal
     Route: 065
  3. REMERON [Concomitant]
     Active Substance: MIRTAZAPINE
     Indication: Depression
     Route: 065

REACTIONS (4)
  - Adverse event [Recovered/Resolved]
  - Night sweats [Recovered/Resolved]
  - Hallucination [Recovered/Resolved]
  - Product substitution issue [Unknown]
